FAERS Safety Report 7923089-1 (Version None)
Quarter: 2011Q4

REPORT INFORMATION
  Report Type: 
  Country: None (occurrence: None)
  Receive Date: 20111117
  Receipt Date: 20110128
  Transmission Date: 20120403
  Serious: Yes (Other)
  Sender: FDA-Public Use
  Company Number: US-AMGEN-USASP2011005661

PATIENT
  Sex: Female

DRUGS (2)
  1. ENBREL [Suspect]
     Indication: PSORIASIS
     Dates: start: 20050101
  2. STELARA [Concomitant]

REACTIONS (3)
  - PUSTULAR PSORIASIS [None]
  - SKIN EXFOLIATION [None]
  - INJECTION SITE HAEMATOMA [None]
